FAERS Safety Report 24986081 (Version 1)
Quarter: 2025Q1

REPORT INFORMATION
  Report Type: Spontaneous
  Country: RU (occurrence: RU)
  Receive Date: 20250219
  Receipt Date: 20250219
  Transmission Date: 20250408
  Serious: Yes (Death, Other)
  Sender: DAIICHI
  Company Number: RU-ASTRAZENECA-202502RUS010940RU

PATIENT
  Sex: Female

DRUGS (1)
  1. TRASTUZUMAB DERUXTECAN [Suspect]
     Active Substance: TRASTUZUMAB DERUXTECAN
     Indication: Breast cancer metastatic
     Dosage: 5.4 MG/KG, ONCE EVERY 3 WK
     Route: 042
     Dates: start: 202407

REACTIONS (7)
  - Death [Fatal]
  - Malignant neoplasm progression [Recovered/Resolved]
  - Thrombocytopenia [Unknown]
  - Neoplasm malignant [Unknown]
  - Neurological symptom [Unknown]
  - Condition aggravated [Unknown]
  - Weight decreased [Unknown]
